FAERS Safety Report 8181545 (Version 5)
Quarter: 2012Q4

REPORT INFORMATION
  Report Type: 
  Country: FR (occurrence: FR)
  Receive Date: 20111014
  Receipt Date: 20121008
  Transmission Date: 20130627
  Serious: Yes (Hospitalization, Other)
  Sender: FDA-Public Use
  Company Number: FR-UCBSA-041775

PATIENT
  Age: 68 Year
  Sex: Female

DRUGS (17)
  1. CIMZIA [Suspect]
     Indication: RHEUMATOID ARTHRITIS
     Dosage: 2 x 200MG
     Route: 058
     Dates: start: 20110712, end: 2011
  2. CIMZIA [Suspect]
     Indication: RHEUMATOID ARTHRITIS
     Route: 058
     Dates: start: 2011, end: 2011
  3. LERCANIDIPINE [Concomitant]
  4. ACTISKENAN [Concomitant]
  5. ACTONEL [Concomitant]
  6. CORTANCYL [Concomitant]
  7. NOVOMIX [Concomitant]
  8. NOVORAPID [Concomitant]
  9. DAFALGAN [Concomitant]
  10. FLECAINE [Concomitant]
  11. INEXIUM [Concomitant]
  12. LASILIX [Concomitant]
  13. RAMIPRIL [Concomitant]
  14. LAMALINE [Concomitant]
  15. TAHOR [Concomitant]
     Dosage: 10 MG
  16. OROCAL VITAMIN D3 [Concomitant]
  17. KALEORID [Concomitant]

REACTIONS (4)
  - Transient ischaemic attack [Recovered/Resolved]
  - Arteriosclerosis coronary artery [Unknown]
  - Blister [Unknown]
  - Pruritus [Unknown]
